FAERS Safety Report 9114895 (Version 1)
Quarter: 2013Q1

REPORT INFORMATION
  Report Type: Spontaneous
  Country: ES (occurrence: ES)
  Receive Date: 20130128
  Receipt Date: 20130128
  Transmission Date: 20140127
  Serious: Yes (Hospitalization)
  Sender: FDA-Public Use
  Company Number: ES-ELI_LILLY_AND_COMPANY-ES201209000723

PATIENT
  Age: 60 None
  Sex: Female

DRUGS (2)
  1. FORSTEO [Suspect]
     Dosage: 20 UG, QD
     Route: 058
     Dates: start: 20120903
  2. FORSTEO [Suspect]
     Dosage: 20 UG, QD
     Route: 058
     Dates: end: 201209

REACTIONS (5)
  - Arthritis bacterial [Unknown]
  - Back pain [Recovered/Resolved]
  - Asthenia [Unknown]
  - Muscle spasms [Unknown]
  - Spinal pain [Recovered/Resolved]
